FAERS Safety Report 5945948-1 (Version None)
Quarter: 2008Q4

REPORT INFORMATION
  Report Type: 
  Country: None (occurrence: None)
  Receive Date: 20081106
  Receipt Date: 20081023
  Transmission Date: 20090506
  Serious: Yes (Hospitalization)
  Sender: FDA-Public Use
  Company Number: 2008002768

PATIENT
  Age: 52 Year
  Sex: Female

DRUGS (3)
  1. ERLOTINIB (ERLOTINIB) (TABLET) (ERLOTINIB) [Suspect]
     Indication: LUNG NEOPLASM MALIGNANT
     Dosage: (150 MG, QD), ORAL
     Route: 048
     Dates: start: 20080916
  2. BEVACIZUMAB (INJECTION FOR INFUSION) [Suspect]
     Dosage: (900 MG, Q3W), INTRAVENOUS
     Route: 042
     Dates: start: 20080916
  3. MINOCYCLINE HCL [Concomitant]

REACTIONS (1)
  - TUMOUR ASSOCIATED FEVER [None]
